FAERS Safety Report 11243304 (Version 1)
Quarter: 2015Q3

REPORT INFORMATION
  Report Type: Spontaneous
  Country: US (occurrence: US)
  Receive Date: 20150707
  Receipt Date: 20150707
  Transmission Date: 20151125
  Serious: No
  Sender: FDA-Public Use
  Company Number: US-DSJP-DSU-2014-121118

PATIENT
  Age: 46 Year
  Sex: Female

DRUGS (4)
  1. WELCHOL [Suspect]
     Active Substance: COLESEVELAM HYDROCHLORIDE
     Indication: DYSPEPSIA
  2. WELCHOL [Suspect]
     Active Substance: COLESEVELAM HYDROCHLORIDE
     Indication: DIARRHOEA
     Dosage: 625 MG 4-6 TABLETS QD AS NEEDED
     Route: 048
     Dates: start: 201209
  3. AMITRIPTYLINE [Concomitant]
     Active Substance: AMITRIPTYLINE
     Indication: NEURALGIA
     Dosage: UNK
     Route: 048
  4. CELEXA [Concomitant]
     Active Substance: CITALOPRAM HYDROBROMIDE
     Indication: DEPRESSION
     Dosage: UNK
     Route: 048

REACTIONS (2)
  - Off label use [Not Recovered/Not Resolved]
  - No adverse event [Not Recovered/Not Resolved]

NARRATIVE: CASE EVENT DATE: 201209
